FAERS Safety Report 8828273 (Version 7)
Quarter: 2013Q3

REPORT INFORMATION
  Report Type: Spontaneous
  Country: JP (occurrence: JP)
  Receive Date: 20121008
  Receipt Date: 20130827
  Transmission Date: 20140515
  Serious: Yes (Hospitalization, Disabling, Other)
  Sender: FDA-Public Use
  Company Number: PHHY2012JP087415

PATIENT
  Age: 76 Year
  Sex: Male
  Weight: 67 kg

DRUGS (6)
  1. TASIGNA [Suspect]
     Indication: CHRONIC MYELOID LEUKAEMIA
     Dosage: 400 MG, DAILY
     Route: 048
     Dates: start: 20100423, end: 20100604
  2. TASIGNA [Suspect]
     Dosage: 800 MG, DAILY
     Route: 048
     Dates: start: 20100604, end: 20100813
  3. TASIGNA [Suspect]
     Dosage: 200 MG, DAILY
     Route: 048
     Dates: start: 20110528, end: 20121011
  4. SPRYCEL [Concomitant]
     Dosage: 50 MG
     Route: 048
     Dates: start: 20100814, end: 20110527
  5. PLETAAL [Concomitant]
     Dosage: 100 MG
     Route: 048
     Dates: start: 20000906
  6. PLETAAL [Concomitant]
     Dosage: 200 MG
     Route: 048
     Dates: end: 20110928

REACTIONS (14)
  - Cerebral infarction [Unknown]
  - Altered state of consciousness [Unknown]
  - Amnesia [Unknown]
  - Hemiplegia [Unknown]
  - Muscular weakness [Recovering/Resolving]
  - Dyslalia [Unknown]
  - Thalamic infarction [Recovering/Resolving]
  - Arterial thrombosis [Unknown]
  - Fall [Recovered/Resolved]
  - Arterial stenosis [Unknown]
  - Peripheral arterial occlusive disease [Unknown]
  - Intermittent claudication [Unknown]
  - Arteriosclerosis [Unknown]
  - Dysphonia [Recovered/Resolved]
